FAERS Safety Report 23878781 (Version 1)
Quarter: 2024Q2

REPORT INFORMATION
  Report Type: Spontaneous
  Country: CH (occurrence: CH)
  Receive Date: 20240521
  Receipt Date: 20240521
  Transmission Date: 20240716
  Serious: Yes (Other)
  Sender: FDA-Public Use
  Company Number: CH-INSUD PHARMA-2405CH03956

PATIENT

DRUGS (1)
  1. CLOBETASOL [Suspect]
     Active Substance: CLOBETASOL
     Indication: Psoriasis
     Dosage: APPLIED ON THE WHOLE SKIN 3 TIMES PER WEEK
     Route: 061

REACTIONS (6)
  - Hemianopia heteronymous [Recovered/Resolved with Sequelae]
  - Glaucoma [Recovered/Resolved]
  - Visual impairment [Recovered/Resolved]
  - Visual field defect [Recovered/Resolved]
  - Visual acuity reduced [Recovered/Resolved]
  - Product use issue [Unknown]
